FAERS Safety Report 15122549 (Version 2)
Quarter: 2018Q3

REPORT INFORMATION
  Report Type: Spontaneous
  Country: NO (occurrence: NO)
  Receive Date: 20180709
  Receipt Date: 20180807
  Transmission Date: 20181010
  Serious: Yes (Hospitalization, Other)
  Sender: FDA-Public Use
  Company Number: NO-SA-2018SA174886

PATIENT
  Age: 57 Year
  Sex: Male

DRUGS (3)
  1. ALEMTUZUMAB [Suspect]
     Active Substance: ALEMTUZUMAB
     Route: 042
     Dates: start: 20180529, end: 20180531
  2. CANDESARTAN. [Concomitant]
     Active Substance: CANDESARTAN
     Indication: HYPERTENSION
     Dosage: ONGOING TREATMENT SINCE YEARS.
     Route: 048
  3. ZOVIRAX [ACICLOVIR] [Concomitant]
     Indication: PROPHYLAXIS
     Route: 048
     Dates: start: 20180529

REACTIONS (2)
  - Infection [Recovering/Resolving]
  - Listeriosis [Recovering/Resolving]

NARRATIVE: CASE EVENT DATE: 20180603
